FAERS Safety Report 4350092-3 (Version None)
Quarter: 2004Q2

REPORT INFORMATION
  Report Type: 
  Country: None (occurrence: None)
  Receive Date: 20040429
  Receipt Date: 20031029
  Transmission Date: 20050107
  Serious: Yes (Death, Hospitalization)
  Sender: FDA-Public Use
  Company Number: US-GLAXOSMITHKLINE-B0313909A

PATIENT
  Age: 47 Year
  Sex: Male

DRUGS (5)
  1. WELLBUTRIN [Suspect]
     Route: 065
  2. METHADONE HCL [Suspect]
     Route: 065
  3. ALPRAZOLAM [Suspect]
     Route: 065
  4. DIPHENHYDRAMINE HCL [Suspect]
     Route: 065
  5. COCAINE [Suspect]
     Route: 065

REACTIONS (11)
  - ARRHYTHMIA [None]
  - BUNDLE BRANCH BLOCK RIGHT [None]
  - CARDIO-RESPIRATORY ARREST [None]
  - COMPLETED SUICIDE [None]
  - DYSPNOEA [None]
  - ELECTROCARDIOGRAM QT PROLONGED [None]
  - HYPOTENSION [None]
  - HYPOTHERMIA [None]
  - HYPOXIA [None]
  - MULTI-ORGAN FAILURE [None]
  - RESPIRATORY DEPRESSION [None]
